FAERS Safety Report 9289944 (Version 1)
Quarter: 2013Q2

REPORT INFORMATION
  Report Type: Spontaneous
  Country: IL (occurrence: IL)
  Receive Date: 20130515
  Receipt Date: 20130515
  Transmission Date: 20140414
  Serious: Yes (Other)
  Sender: FDA-Public Use
  Company Number: IL-JNJFOC-20130500263

PATIENT
  Age: 45 Year
  Sex: Male

DRUGS (13)
  1. DOXORUBICIN [Suspect]
     Indication: DIFFUSE LARGE B-CELL LYMPHOMA
     Route: 042
     Dates: end: 201012
  2. OFLOXACIN [Suspect]
     Indication: TUBERCULOSIS
     Dosage: 12 MONTHS
     Route: 065
  3. RITUXIMAB [Suspect]
     Indication: DIFFUSE LARGE B-CELL LYMPHOMA
     Route: 065
  4. RITUXIMAB [Suspect]
     Indication: DIFFUSE LARGE B-CELL LYMPHOMA
     Route: 065
  5. CYCLOPHOSPHAMIDE [Suspect]
     Indication: DIFFUSE LARGE B-CELL LYMPHOMA
     Route: 065
     Dates: end: 201012
  6. VINCRISTINE [Suspect]
     Indication: DIFFUSE LARGE B-CELL LYMPHOMA
     Route: 065
     Dates: end: 201012
  7. PREDNISONE [Suspect]
     Indication: DIFFUSE LARGE B-CELL LYMPHOMA
     Route: 065
     Dates: end: 201012
  8. METHOTREXATE [Suspect]
     Indication: CHEMOTHERAPY
     Route: 065
     Dates: end: 201012
  9. METHOTREXATE [Suspect]
     Indication: CHEMOTHERAPY
     Route: 065
  10. ISONIAZID [Suspect]
     Indication: TUBERCULOSIS
     Dosage: 12 MONTHS
     Route: 065
     Dates: start: 201102
  11. RIFAMPIN [Suspect]
     Indication: TUBERCULOSIS
     Dosage: 12 MONTHS
     Route: 065
     Dates: start: 201102
  12. PYRAZINAMIDE [Suspect]
     Indication: TUBERCULOSIS
     Dosage: 12 MONTHS
     Route: 065
     Dates: start: 201102
  13. ETHAMBUTOL [Suspect]
     Indication: TUBERCULOSIS
     Dosage: 12 MONTHS
     Route: 065
     Dates: start: 201102

REACTIONS (1)
  - Immune reconstitution inflammatory syndrome [Recovered/Resolved]
